FAERS Safety Report 7643991-8 (Version None)
Quarter: 2011Q3

REPORT INFORMATION
  Report Type: 
  Country: None (occurrence: None)
  Receive Date: 20110729
  Receipt Date: 20110127
  Transmission Date: 20111222
  Serious: No
  Sender: FDA-Public Use
  Company Number: US-GLAXOSMITHKLINE-A0910290A

PATIENT
  Sex: Male

DRUGS (2)
  1. PEPCID [Suspect]
     Indication: HYPERCHLORHYDRIA
     Route: 048
  2. ZANTAC [Suspect]
     Indication: HYPERCHLORHYDRIA
     Route: 048

REACTIONS (2)
  - DRUG INEFFECTIVE [None]
  - DYSPHONIA [None]
